FAERS Safety Report 13334494 (Version 1)
Quarter: 2017Q1

REPORT INFORMATION
  Report Type: Spontaneous
  Country: US (occurrence: US)
  Receive Date: 20170314
  Receipt Date: 20170314
  Transmission Date: 20170428
  Serious: No
  Sender: FDA-Public Use
  Company Number: US-JNJFOC-20170218483

PATIENT
  Age: 77 Year
  Sex: Male

DRUGS (6)
  1. IMBRUVICA [Suspect]
     Active Substance: IBRUTINIB
     Indication: LEUKAEMIA
     Route: 048
     Dates: start: 201607
  2. IMBRUVICA [Suspect]
     Active Substance: IBRUTINIB
     Indication: LYMPHADENOPATHY
     Route: 048
     Dates: start: 201607
  3. FINASTERIDE. [Concomitant]
     Active Substance: FINASTERIDE
  4. METFORMIN [Suspect]
     Active Substance: METFORMIN HYDROCHLORIDE
     Indication: DIABETES MELLITUS
     Dosage: 4 CAPSULES
  5. METFORMIN [Suspect]
     Active Substance: METFORMIN HYDROCHLORIDE
     Indication: DIABETES MELLITUS
     Dosage: 3 CAPSULES
  6. LEXAPRO [Concomitant]
     Active Substance: ESCITALOPRAM OXALATE

REACTIONS (6)
  - Diarrhoea [Recovering/Resolving]
  - Pain in extremity [Unknown]
  - Fall [Recovered/Resolved]
  - Cellulitis [Unknown]
  - Limb injury [Unknown]
  - Skin abrasion [Unknown]

NARRATIVE: CASE EVENT DATE: 201607
